FAERS Safety Report 8462535-4 (Version None)
Quarter: 2012Q2

REPORT INFORMATION
  Report Type: 
  Country: None (occurrence: None)
  Receive Date: 20120625
  Receipt Date: 20120619
  Transmission Date: 20120825
  Serious: No
  Sender: FDA-Public Use
  Company Number: US-B.I. PHARMACEUTICALS,INC./RIDGEFIELD-2012-BP-14049BP

PATIENT
  Sex: Female
  Weight: 61 kg

DRUGS (2)
  1. OMEPRAZOLE [Concomitant]
     Indication: DYSPEPSIA
  2. PRADAXA [Suspect]
     Indication: ATRIAL FIBRILLATION
     Dosage: 300 MG
     Route: 048
     Dates: start: 20110101

REACTIONS (10)
  - BODY FAT DISORDER [None]
  - PAIN IN EXTREMITY [None]
  - DIARRHOEA [None]
  - MUSCULOSKELETAL CHEST PAIN [None]
  - PARAESTHESIA ORAL [None]
  - MUSCULOSKELETAL PAIN [None]
  - PARAESTHESIA [None]
  - BALANCE DISORDER [None]
  - DYSPEPSIA [None]
  - MELAENA [None]
